FAERS Safety Report 25681214 (Version 2)
Quarter: 2025Q3

REPORT INFORMATION
  Report Type: Spontaneous
  Country: US (occurrence: US)
  Receive Date: 20250814
  Receipt Date: 20250826
  Transmission Date: 20251021
  Serious: No
  Sender: HETERO
  Company Number: US-HETERO-HET2025US04767

PATIENT
  Age: 74 Year
  Sex: Female
  Weight: 58.503 kg

DRUGS (2)
  1. GABAPENTIN [Suspect]
     Active Substance: GABAPENTIN
     Indication: Fibromyalgia
     Route: 048
     Dates: start: 20250722, end: 20250725
  2. LISINOPRIL [Concomitant]
     Active Substance: LISINOPRIL
     Indication: Product used for unknown indication
     Route: 065

REACTIONS (2)
  - Dyskinesia [Recovered/Resolved]
  - Off label use [Unknown]

NARRATIVE: CASE EVENT DATE: 20250722
